FAERS Safety Report 24811360 (Version 3)
Quarter: 2025Q2

REPORT INFORMATION
  Report Type: Spontaneous
  Country: FR (occurrence: FR)
  Receive Date: 20250106
  Receipt Date: 20250618
  Transmission Date: 20250716
  Serious: Yes (Hospitalization, Disabling, Other)
  Sender: OTSUKA
  Company Number: FR-OTSUKA-2024_035017

PATIENT
  Sex: Female
  Weight: 95 kg

DRUGS (12)
  1. ABILIFY [Suspect]
     Active Substance: ARIPIPRAZOLE
     Indication: Affective disorder
     Dosage: 10 MG, QD
     Route: 065
     Dates: start: 20230601, end: 202410
  2. ABILIFY [Suspect]
     Active Substance: ARIPIPRAZOLE
     Dosage: 5 MG, QD
     Route: 065
     Dates: start: 202105, end: 20231102
  3. FLUOXETINE [Concomitant]
     Active Substance: FLUOXETINE HYDROCHLORIDE
     Indication: Product used for unknown indication
     Route: 065
     Dates: start: 2019
  4. FLUOXETINE [Concomitant]
     Active Substance: FLUOXETINE HYDROCHLORIDE
     Route: 065
     Dates: start: 202311
  5. MIRTAZAPINE [Concomitant]
     Active Substance: MIRTAZAPINE
     Indication: Product used for unknown indication
     Route: 065
     Dates: start: 2019
  6. ZOLPIDEM [Concomitant]
     Active Substance: ZOLPIDEM TARTRATE
     Indication: Product used for unknown indication
     Route: 065
     Dates: start: 2019
  7. OXCARBAZEPINE [Concomitant]
     Active Substance: OXCARBAZEPINE
     Indication: Product used for unknown indication
     Route: 065
     Dates: start: 2019
  8. PREGABALIN [Concomitant]
     Active Substance: PREGABALIN
     Indication: Product used for unknown indication
     Route: 065
     Dates: start: 2021
  9. QUTENZA [Concomitant]
     Active Substance: CAPSAICIN
     Indication: Analgesic therapy
     Route: 065
     Dates: start: 2021
  10. LAMOTRIGINE [Concomitant]
     Active Substance: LAMOTRIGINE
     Indication: Temperature regulation disorder
     Route: 065
     Dates: start: 2023
  11. LAMOTRIGINE [Concomitant]
     Active Substance: LAMOTRIGINE
     Route: 065
     Dates: start: 2023
  12. ALPRAZOLAM [Concomitant]
     Active Substance: ALPRAZOLAM
     Indication: Product used for unknown indication
     Route: 065

REACTIONS (12)
  - Trismus [Recovered/Resolved]
  - Dysarthria [Not Recovered/Not Resolved]
  - Tardive dyskinesia [Not Recovered/Not Resolved]
  - Salivary hypersecretion [Recovering/Resolving]
  - Tremor [Recovered/Resolved]
  - Dyskinesia [Recovered/Resolved]
  - Conjunctival hyperaemia [Not Recovered/Not Resolved]
  - Eyelid ptosis [Not Recovered/Not Resolved]
  - Asthenia [Recovering/Resolving]
  - Myalgia [Recovered/Resolved]
  - Fatigue [Recovering/Resolving]
  - Off label use [Unknown]

NARRATIVE: CASE EVENT DATE: 20210101
